FAERS Safety Report 6287897-8 (Version None)
Quarter: 2009Q3

REPORT INFORMATION
  Report Type: 
  Country: None (occurrence: None)
  Receive Date: 20090729
  Receipt Date: 20090723
  Transmission Date: 20100115
  Serious: Yes (Hospitalization, Other)
  Sender: FDA-Public Use
  Company Number: US-JNJFOC-20090300262

PATIENT
  Sex: Female

DRUGS (5)
  1. ORTHO EVRA [Suspect]
     Indication: CONTRACEPTION
  2. ALLEGRA D 24 HOUR [Concomitant]
  3. FLONASE [Concomitant]
  4. PREVACID [Concomitant]
  5. ALBUTEROL [Concomitant]

REACTIONS (3)
  - CAVERNOUS SINUS THROMBOSIS [None]
  - INFERTILITY [None]
  - MIGRAINE [None]
